FAERS Safety Report 10022920 (Version 1)
Quarter: 2014Q1

REPORT INFORMATION
  Report Type: Spontaneous
  Country: US (occurrence: US)
  Receive Date: 20140319
  Receipt Date: 20140319
  Transmission Date: 20141002
  Serious: Yes (Disabling)
  Sender: FDA-Public Use
  Company Number: US-SANOFI-AVENTIS-2013SA052897

PATIENT
  Age: 11 Year
  Sex: Female

DRUGS (4)
  1. NASACORT AQ [Suspect]
     Indication: RHINITIS ALLERGIC
     Route: 065
  2. NASONEX [Suspect]
     Indication: RHINITIS ALLERGIC
     Route: 065
  3. ZYRTEC [Concomitant]
  4. CLARITIN [Concomitant]

REACTIONS (1)
  - Cataract subcapsular [Unknown]
